FAERS Safety Report 8151569-5 (Version None)
Quarter: 2012Q1

REPORT INFORMATION
  Report Type: 
  Country: None (occurrence: None)
  Receive Date: 20120220
  Receipt Date: 20120206
  Transmission Date: 20120608
  Serious: Yes (Hospitalization)
  Sender: FDA-Public Use
  Company Number: GB-ROCHE-570211

PATIENT
  Sex: Female
  Weight: 101.2 kg

DRUGS (3)
  1. OMEPRAZOLE [Suspect]
     Indication: ANTACID THERAPY
     Route: 048
     Dates: start: 20080201, end: 20080616
  2. METOCLOPRAMIDE [Suspect]
     Indication: ANTIEMETIC SUPPORTIVE CARE
     Route: 048
     Dates: start: 20080201, end: 20080616
  3. XELODA [Suspect]
     Indication: COLON CANCER
     Dosage: DRUG INTERRUPTED
     Route: 048
     Dates: start: 20080228, end: 20080603

REACTIONS (18)
  - UNRESPONSIVE TO STIMULI [None]
  - INFECTION [None]
  - METABOLIC ALKALOSIS [None]
  - SEPSIS [None]
  - NERVOUS SYSTEM DISORDER [None]
  - ASTHENIA [None]
  - C-REACTIVE PROTEIN INCREASED [None]
  - INCONTINENCE [None]
  - CONFUSIONAL STATE [None]
  - GENERAL PHYSICAL HEALTH DETERIORATION [None]
  - ELECTROLYTE IMBALANCE [None]
  - MENTAL IMPAIRMENT [None]
  - BLOOD BILIRUBIN INCREASED [None]
  - NEUTROPHIL COUNT INCREASED [None]
  - DISORIENTATION [None]
  - DIARRHOEA [None]
  - BLOOD POTASSIUM DECREASED [None]
  - DEHYDRATION [None]
